FAERS Safety Report 16403055 (Version 1)
Quarter: 2019Q2

REPORT INFORMATION
  Report Type: Report from Study
  Country: US (occurrence: US)
  Receive Date: 20190607
  Receipt Date: 20190607
  Transmission Date: 20190711
  Serious: Yes (Hospitalization)
  Sender: FDA-Public Use
  Company Number: US-ROCHE-2332580

PATIENT
  Sex: Female
  Weight: 67 kg

DRUGS (1)
  1. ESBRIET [Suspect]
     Active Substance: PIRFENIDONE
     Indication: IDIOPATHIC PULMONARY FIBROSIS
     Dosage: TAKE 1 TABLET BY MOUTH 3 TIMES A DAY FOR 7 DAYS THEN TAKE 2 TABLET(S) BY MOUTH 3 TIMES A DAY FOR 7 D
     Route: 048

REACTIONS (1)
  - Lung disorder [Unknown]
